FAERS Safety Report 7603067-2 (Version None)
Quarter: 2011Q2

REPORT INFORMATION
  Report Type: 
  Country: None (occurrence: None)
  Receive Date: 20110630
  Receipt Date: 20110625
  Transmission Date: 20111010
  Serious: Yes (Life-Threatening, Hospitalization)
  Sender: FDA-Public Use
  Company Number: 2010SP037411

PATIENT
  Age: 32 Year
  Sex: Male
  Weight: 76 kg

DRUGS (11)
  1. PEG-INTRON [Suspect]
     Indication: HEPATITIS C
     Dosage: 100 MCG; QW; SC   80 MCG; QW; SC
     Route: 058
     Dates: start: 20100701, end: 20100701
  2. PEG-INTRON [Suspect]
     Indication: HEPATITIS C
     Dosage: 100 MCG; QW; SC   80 MCG; QW; SC
     Route: 058
     Dates: start: 20100602, end: 20100614
  3. PEG-INTRON [Suspect]
     Indication: HEPATITIS C
     Dosage: 100 MCG; QW; SC   80 MCG; QW; SC
     Route: 058
     Dates: start: 20100623, end: 20100623
  4. GASLON N [Concomitant]
  5. CLARITIN [Concomitant]
  6. LANSOPRAZOLE [Concomitant]
  7. VOLTAREN [Concomitant]
  8. REBETOL [Suspect]
     Indication: HEPATITIS C
     Dosage: 400 MG;BID;PO  200 MG;BID;PO
     Dates: start: 20100609, end: 20100707
  9. REBETOL [Suspect]
     Indication: HEPATITIS C
     Dosage: 400 MG;BID;PO  200 MG;BID;PO
     Dates: start: 20100602, end: 20100607
  10. HALCION [Concomitant]
  11. RIZE [Concomitant]

REACTIONS (6)
  - HAEMOLYTIC ANAEMIA [None]
  - CONTINUOUS HAEMODIAFILTRATION [None]
  - HAEMOLYTIC URAEMIC SYNDROME [None]
  - RENAL DISORDER [None]
  - ALTERED STATE OF CONSCIOUSNESS [None]
  - PLATELET COUNT DECREASED [None]
